FAERS Safety Report 24827570 (Version 1)
Quarter: 2025Q1

REPORT INFORMATION
  Report Type: Spontaneous
  Country: US (occurrence: US)
  Receive Date: 20250109
  Receipt Date: 20250109
  Transmission Date: 20250409
  Serious: Yes (Other)
  Sender: SANOFI AVENTIS
  Company Number: US-SANOFI-02364210

PATIENT
  Sex: Female

DRUGS (1)
  1. MULTAQ [Suspect]
     Active Substance: DRONEDARONE
     Indication: Atrial fibrillation
     Dosage: 400 MG, BID
     Route: 065
     Dates: start: 20241218

REACTIONS (5)
  - Neuropathy peripheral [Unknown]
  - Sleep disorder [Unknown]
  - Nervousness [Unknown]
  - Anxiety [Unknown]
  - Raynaud^s phenomenon [Unknown]
